FAERS Safety Report 19004782 (Version 1)
Quarter: 2021Q1

REPORT INFORMATION
  Report Type: Spontaneous
  Country: JP (occurrence: JP)
  Receive Date: 20210312
  Receipt Date: 20210312
  Transmission Date: 20210420
  Serious: Yes (Death)
  Sender: FDA-Public Use
  Company Number: JP-ROCHE-2788556

PATIENT
  Age: 7 Decade
  Sex: Male

DRUGS (2)
  1. AVASTIN [Suspect]
     Active Substance: BEVACIZUMAB
     Indication: HEPATOCELLULAR CARCINOMA
     Dosage: MOST RECENT DOSE PRIOR TO AE 20/JAN/2021
     Route: 042
     Dates: start: 20201203
  2. TECENTRIQ [Suspect]
     Active Substance: ATEZOLIZUMAB
     Indication: HEPATOCELLULAR CARCINOMA
     Dosage: MOST RECENT DOSE PRIOR TO AE 20/JAN/2021
     Route: 041
     Dates: start: 20201203

REACTIONS (1)
  - Death [Fatal]

NARRATIVE: CASE EVENT DATE: 20210127
